FAERS Safety Report 7387522-9 (Version None)
Quarter: 2011Q1

REPORT INFORMATION
  Report Type: 
  Country: None (occurrence: None)
  Receive Date: 20110331
  Receipt Date: 20110328
  Transmission Date: 20110831
  Serious: Yes (Other)
  Sender: FDA-Public Use
  Company Number: JP-PFIZER INC-2011068840

PATIENT
  Age: 60 Year
  Sex: Male

DRUGS (2)
  1. CADUET [Suspect]
     Dosage: UNK
     Route: 048
     Dates: start: 20110201, end: 20110301
  2. MICOMBI COMBINATION TABLETS AP [Concomitant]

REACTIONS (2)
  - GENERALISED OEDEMA [None]
  - DERMATITIS EXFOLIATIVE [None]
